FAERS Safety Report 24022917 (Version 8)
Quarter: 2024Q3

REPORT INFORMATION
  Report Type: Report from Study
  Country: CZ (occurrence: CZ)
  Receive Date: 20240627
  Receipt Date: 20240710
  Transmission Date: 20241016
  Serious: No
  Sender: ROCHE
  Company Number: CZ-ROCHE-3386858

PATIENT
  Age: 40 Year
  Sex: Male
  Weight: 77.0 kg

DRUGS (19)
  1. ALECTINIB [Suspect]
     Active Substance: ALECTINIB
     Indication: Lung cancer metastatic
     Route: 048
     Dates: start: 20230314
  2. ATEZOLIZUMAB [Concomitant]
     Active Substance: ATEZOLIZUMAB
     Route: 065
     Dates: start: 20231127, end: 20240205
  3. PANTOPRAZOLE SODIUM [Concomitant]
     Active Substance: PANTOPRAZOLE SODIUM
     Route: 048
     Dates: start: 20230215, end: 20230504
  4. CALTRATE [Concomitant]
     Active Substance: CALCIUM CARBONATE
     Route: 048
     Dates: start: 20230215
  5. ACETAMINOPHEN\CODEINE PHOSPHATE [Concomitant]
     Active Substance: ACETAMINOPHEN\CODEINE PHOSPHATE
     Indication: Back pain
     Route: 048
     Dates: start: 20230215
  6. BROMAZEPAM [Concomitant]
     Active Substance: BROMAZEPAM
     Indication: Anxiety
     Route: 048
     Dates: start: 20230215
  7. ENOXAPARIN SODIUM [Concomitant]
     Active Substance: ENOXAPARIN SODIUM
     Indication: Deep vein thrombosis
     Route: 058
     Dates: start: 20230215, end: 20230504
  8. XGEVA [Concomitant]
     Active Substance: DENOSUMAB
     Route: 058
     Dates: start: 20230306
  9. CONTROLOC [Concomitant]
     Active Substance: PANTOPRAZOLE SODIUM
     Dosage: DUE TO THERAPY CORTICOSTEROIDS
     Route: 048
     Dates: start: 20230616
  10. FUROSEMIDE [Concomitant]
     Active Substance: FUROSEMIDE
     Route: 048
     Dates: end: 20230504
  11. BIOFENAC (CZECH REPUBLIC) [Concomitant]
     Indication: Back pain
     Route: 048
     Dates: start: 20230427
  12. ELIQUIS [Concomitant]
     Active Substance: APIXABAN
     Indication: Pulmonary embolism
     Route: 048
     Dates: start: 20230504
  13. POTASSIUM CHLORIDE [Concomitant]
     Active Substance: POTASSIUM CHLORIDE
     Route: 048
     Dates: start: 20230616
  14. FAMOTIDINE [Concomitant]
     Active Substance: FAMOTIDINE
     Dosage: DUE TO THERAPY CORTICOSTEROIDS
     Route: 048
     Dates: start: 20230712
  15. LORLATINIB [Concomitant]
     Active Substance: LORLATINIB
     Dates: start: 20230802, end: 20230802
  16. BISOPROLOL [Concomitant]
     Active Substance: BISOPROLOL\BISOPROLOL FUMARATE
     Dosage: PREVENTION OF ULCER DISEASE
     Route: 048
     Dates: end: 20230405
  17. PEMETREXED [Concomitant]
     Active Substance: PEMETREXED
     Dates: start: 20231127, end: 20240205
  18. LORLATINIB [Concomitant]
     Active Substance: LORLATINIB
     Dates: start: 20230802, end: 20231102
  19. CISPLATIN [Concomitant]
     Active Substance: CISPLATIN
     Dates: start: 20231127, end: 20240205

REACTIONS (3)
  - Chest pain [Recovered/Resolved]
  - Pneumonia [Recovered/Resolved]
  - Lung infiltration [Recovered/Resolved]

NARRATIVE: CASE EVENT DATE: 20230427
